FAERS Safety Report 11984452 (Version 1)
Quarter: 2016Q1

REPORT INFORMATION
  Report Type: Spontaneous
  Country: US (occurrence: US)
  Receive Date: 20160201
  Receipt Date: 20160201
  Transmission Date: 20160526
  Serious: Yes (Other)
  Sender: FDA-Public Use
  Company Number: US-KADMON PHARMACEUTICALS, LLC-KAD201505-001016

PATIENT
  Age: 60 Year
  Sex: Female

DRUGS (1)
  1. RIBASPHERE RIBAPAK [Suspect]
     Active Substance: RIBAVIRIN
     Indication: HEPATITIS C
     Dosage: TABLET; 600 MG EVERY MORNING AND 400 MG EVERY EVENING
     Route: 048
     Dates: start: 20150220

REACTIONS (4)
  - Fatigue [Unknown]
  - Depression [Unknown]
  - Tinnitus [Unknown]
  - Pruritus [Unknown]
